FAERS Safety Report 21500766 (Version 1)
Quarter: 2022Q4

REPORT INFORMATION
  Report Type: Spontaneous
  Country: US (occurrence: US)
  Receive Date: 20221025
  Receipt Date: 20221025
  Transmission Date: 20230112
  Serious: No
  Sender: FDA-Public Use
  Company Number: US-LEO Pharma-346079

PATIENT
  Sex: Male

DRUGS (1)
  1. ADBRY [Suspect]
     Active Substance: TRALOKINUMAB-LDRM
     Indication: Product used for unknown indication
     Dosage: 4 INJECTIONS FOR THE INITIAL DOSE THEN AT 2 INJECTIONS EVERY TWO WEEKS ADMINISTERED SUBCUTANEOUSLY

REACTIONS (2)
  - Rash [Unknown]
  - Dry mouth [Unknown]
